FAERS Safety Report 6115364-0 (Version None)
Quarter: 2009Q1

REPORT INFORMATION
  Report Type: 
  Country: None (occurrence: None)
  Receive Date: 20090313
  Receipt Date: 20090302
  Transmission Date: 20090719
  Serious: Yes (Other)
  Sender: FDA-Public Use
  Company Number: US-PFIZER INC-2008079624

PATIENT
  Sex: Male

DRUGS (15)
  1. CHANTIX [Suspect]
     Indication: SMOKING CESSATION THERAPY
     Dates: start: 20070101, end: 20080101
  2. PREDNISONE [Suspect]
     Indication: MYASTHENIA GRAVIS
     Dosage: 2.5 MG, 1X/DAY
  3. VIOXX [Concomitant]
  4. PYRIDOSTIGMINE [Concomitant]
  5. BISACODYL [Concomitant]
  6. ATORVASTATIN CALCIUM [Concomitant]
     Dosage: 20 MG, 1X/DAY
  7. ZETIA [Concomitant]
     Dosage: 10 MG, 1X/DAY
  8. LEVOTHYROXINE [Concomitant]
     Dosage: 0.1 MG, 1X/DAY
  9. METOPROLOL [Concomitant]
     Dosage: 50 MG, UNK
  10. ACTOS [Concomitant]
     Dosage: 30 MG, 1X/DAY
  11. LISINOPRIL [Concomitant]
     Dosage: 10 MG, 1X/DAY
  12. HYDROCHLOROTHIAZIDE [Concomitant]
     Dosage: 12.4 MG, 1X/DAY
  13. ACETYLSALICYLIC ACID [Concomitant]
     Dosage: 81 MG, 1X/DAY
  14. OMEGA-3 TRIGLYCERIDES [Concomitant]
     Dosage: UNK CENTIGRADE, UNK
  15. AMBIEN [Concomitant]
     Dosage: 12.5 MG, UNK

REACTIONS (14)
  - ASTHENIA [None]
  - CATARACT NUCLEAR [None]
  - DEPRESSION [None]
  - DYSPHAGIA [None]
  - DYSPHONIA [None]
  - GASTROOESOPHAGEAL REFLUX DISEASE [None]
  - LARYNGEAL DISORDER [None]
  - LUNG NEOPLASM [None]
  - MYASTHENIA GRAVIS [None]
  - RESPIRATORY DISORDER [None]
  - SPEECH DISORDER [None]
  - TEMPERATURE INTOLERANCE [None]
  - THROAT LESION [None]
  - WEIGHT DECREASED [None]
